FAERS Safety Report 24830493 (Version 1)
Quarter: 2025Q1

REPORT INFORMATION
  Report Type: Spontaneous
  Country: US (occurrence: US)
  Receive Date: 20250110
  Receipt Date: 20250110
  Transmission Date: 20250409
  Serious: Yes (Other)
  Sender: BAYER HEALTHCARE LLC
  Company Number: US-BAYER-2025A003769

PATIENT
  Age: 58 Year
  Sex: Male

DRUGS (6)
  1. ASPIRIN [Suspect]
     Active Substance: ASPIRIN
     Indication: Heart transplant
     Dosage: 81 MG, QID
  2. ASPIRIN [Suspect]
     Active Substance: ASPIRIN
     Indication: End stage renal disease
  3. ASPIRIN [Suspect]
     Active Substance: ASPIRIN
     Indication: Hypertension
  4. ASPIRIN [Suspect]
     Active Substance: ASPIRIN
     Indication: Obesity
  5. ASPIRIN [Suspect]
     Active Substance: ASPIRIN
     Indication: Obstructive sleep apnoea syndrome
  6. TACROLIMUS [Concomitant]
     Active Substance: TACROLIMUS
     Dosage: 10 MG, BID

REACTIONS (3)
  - Upper gastrointestinal haemorrhage [None]
  - Blood loss anaemia [None]
  - Contraindicated product administered [None]
